FAERS Safety Report 10683286 (Version 1)
Quarter: 2014Q4

REPORT INFORMATION
  Report Type: Spontaneous
  Country: CN (occurrence: CN)
  Receive Date: 20141230
  Receipt Date: 20141230
  Transmission Date: 20150529
  Serious: Yes (Other)
  Sender: FDA-Public Use
  Company Number: CN-BAYER-2014-190896

PATIENT

DRUGS (4)
  1. GLUCOBAY [Suspect]
     Active Substance: ACARBOSE
     Dosage: IN THE MORING AND AT NOON
  2. METFORMIN [Concomitant]
     Active Substance: METFORMIN HYDROCHLORIDE
     Dosage: IN THE EVENING
  3. GLUCOBAY [Suspect]
     Active Substance: ACARBOSE
     Dosage: EACH TABLET IN THE MORNING, AT NOON AND IN THE EVENING
  4. NIFEDIPINE. [Concomitant]
     Active Substance: NIFEDIPINE
     Indication: HYPERTENSION
     Dosage: 10 MG, QD

REACTIONS (1)
  - Diabetes mellitus inadequate control [None]
